FAERS Safety Report 9459898 (Version 1)
Quarter: 2013Q3

REPORT INFORMATION
  Report Type: Spontaneous
  Country: IT (occurrence: IT)
  Receive Date: 20130815
  Receipt Date: 20130815
  Transmission Date: 20140515
  Serious: Yes (Other)
  Sender: FDA-Public Use
  Company Number: IT-TEVA-424754ISR

PATIENT
  Age: 72 Year
  Sex: Male

DRUGS (3)
  1. OXALIPLATINO TEVA [Suspect]
     Indication: ADENOCARCINOMA OF COLON
     Dosage: 150MG, CYCLICAL, CONCENTRATE FOR SOLUTION FOR INTRAVENOUS INFUSION
     Dates: start: 20130213, end: 20130724
  2. FLUOROURACILE TEVA [Concomitant]
     Indication: ADENOCARCINOMA OF COLON
     Route: 042
     Dates: start: 20130213, end: 20130703
  3. AVASTIN [Concomitant]
     Indication: ADENOCARCINOMA OF COLON
     Dosage: 300 MILLIGRAM DAILY; CONCENTRATE FOR SOLUTION FOR INTRAVENOUS INFUSION
     Route: 042
     Dates: start: 20130213, end: 20130703

REACTIONS (3)
  - Dysarthria [Recovered/Resolved]
  - Face oedema [Recovered/Resolved]
  - Pruritus [Recovered/Resolved]
